FAERS Safety Report 5491405-9 (Version None)
Quarter: 2007Q4

REPORT INFORMATION
  Report Type: 
  Country: None (occurrence: None)
  Receive Date: 20071018
  Receipt Date: 20071002
  Transmission Date: 20080405
  Serious: Yes (Death)
  Sender: FDA-Public Use
  Company Number: 8027332

PATIENT
  Age: 77 Year
  Sex: Female
  Weight: 65 kg

DRUGS (6)
  1. KEPPRA [Suspect]
     Indication: CONVULSION
     Dosage: 500 MG 2/D IV
     Route: 042
     Dates: start: 20061201, end: 20061202
  2. PHENYTOIN [Concomitant]
  3. ATACAND [Concomitant]
  4. BELOC ZOC MTE [Concomitant]
  5. ARIMIDEX [Concomitant]
  6. LEVOTHYROXINE SODIUM [Concomitant]

REACTIONS (1)
  - ILEUS [None]
